FAERS Safety Report 16499445 (Version 1)
Quarter: 2019Q2

REPORT INFORMATION
  Report Type: Spontaneous
  Country: US (occurrence: US)
  Receive Date: 20190520
  Receipt Date: 20190520
  Transmission Date: 20190711
  Serious: Yes (Other)
  Sender: FDA-Public Use
  Company Number: None

PATIENT
  Age: 56 Year
  Sex: Female
  Weight: 55.34 kg

DRUGS (1)
  1. LOSARTAN POTASSIUM 50MG [Suspect]
     Active Substance: LOSARTAN POTASSIUM
     Indication: HYPERTENSION
     Dosage: ?          OTHER DOSE:ONE TABLET;?
     Route: 048
     Dates: end: 20190430

REACTIONS (1)
  - Lymphoma [None]

NARRATIVE: CASE EVENT DATE: 20190412
